FAERS Safety Report 5848067-8 (Version None)
Quarter: 2008Q3

REPORT INFORMATION
  Report Type: 
  Country: None (occurrence: None)
  Receive Date: 20080815
  Receipt Date: 20080815
  Transmission Date: 20090109
  Serious: No
  Sender: FDA-Public Use
  Company Number: None

PATIENT
  Sex: Female
  Weight: 53.5244 kg

DRUGS (1)
  1. RECLAST [Suspect]

REACTIONS (3)
  - ADVERSE DRUG REACTION [None]
  - DYSPEPSIA [None]
  - FEELING ABNORMAL [None]
